FAERS Safety Report 5224790-3 (Version None)
Quarter: 2007Q1

REPORT INFORMATION
  Report Type: 
  Country: None (occurrence: None)
  Receive Date: 20070131
  Receipt Date: 20070125
  Transmission Date: 20070707
  Serious: Yes (Death)
  Sender: FDA-Public Use
  Company Number: DE-BAYER-200610315BVD

PATIENT
  Age: 71 Year
  Sex: Male
  Weight: 75 kg

DRUGS (6)
  1. SORAFENIB [Suspect]
     Indication: RENAL CELL CARCINOMA STAGE UNSPECIFIED
     Dosage: TOTAL DAILY DOSE: 800 MG
     Route: 048
     Dates: start: 20050817, end: 20060306
  2. MEDROXYPROGESTERON ACETAT [Concomitant]
     Route: 048
     Dates: start: 20060101, end: 20060306
  3. PANTOPRAZOLE SODIUM [Concomitant]
     Route: 048
     Dates: start: 20060101, end: 20060306
  4. METOCLOPRAMIDE [Concomitant]
     Route: 048
     Dates: start: 20051001, end: 20060306
  5. ZOLEDRONIC ACID [Concomitant]
     Route: 042
     Dates: start: 20030701, end: 20060306
  6. NADROPARIN CALCIUM [Concomitant]
     Route: 058
     Dates: start: 20051001, end: 20060306

REACTIONS (1)
  - RENAL CELL CARCINOMA STAGE UNSPECIFIED [None]
